FAERS Safety Report 7062514-8 (Version None)
Quarter: 2010Q4

REPORT INFORMATION
  Report Type: 
  Country: None (occurrence: None)
  Receive Date: 20101026
  Receipt Date: 20091120
  Transmission Date: 20110411
  Serious: No
  Sender: FDA-Public Use
  Company Number: US-PFIZER INC-2009300863

PATIENT
  Sex: Female
  Weight: 65.3 kg

DRUGS (5)
  1. LIPITOR [Suspect]
     Indication: BLOOD CHOLESTEROL INCREASED
     Dosage: UNK
     Dates: end: 20050101
  2. SYNTHROID [Suspect]
     Indication: THYROIDECTOMY
     Dosage: 112 UG, 1X/DAY
     Route: 048
     Dates: end: 20091019
  3. SYNTHROID [Suspect]
     Dosage: 125 UG, 1X/DAY
     Route: 048
     Dates: start: 20091020
  4. MACROBID [Suspect]
     Dosage: UNK
     Dates: end: 20050101
  5. NIACIN [Concomitant]
     Indication: BLOOD CHOLESTEROL INCREASED
     Route: 065

REACTIONS (9)
  - BURNING SENSATION [None]
  - DIZZINESS [None]
  - HEADACHE [None]
  - NEUROPATHY PERIPHERAL [None]
  - PAIN IN EXTREMITY [None]
  - PAIN OF SKIN [None]
  - RASH ERYTHEMATOUS [None]
  - RESTLESS LEGS SYNDROME [None]
  - TRI-IODOTHYRONINE DECREASED [None]
